FAERS Safety Report 8560989-6 (Version None)
Quarter: 2012Q3

REPORT INFORMATION
  Report Type: 
  Country: None (occurrence: None)
  Receive Date: 20120802
  Receipt Date: 20120727
  Transmission Date: 20120928
  Serious: Yes (Hospitalization)
  Sender: FDA-Public Use
  Company Number: US-TEVA-350730USA

PATIENT
  Sex: Male

DRUGS (1)
  1. NUVIGIL [Suspect]

REACTIONS (2)
  - ORAL PAIN [None]
  - GASTROINTESTINAL DISORDER [None]
